FAERS Safety Report 13447395 (Version 3)
Quarter: 2019Q4

REPORT INFORMATION
  Report Type: Spontaneous
  Country: US (occurrence: US)
  Receive Date: 20170417
  Receipt Date: 20191010
  Transmission Date: 20200122
  Serious: Yes (Death, Other)
  Sender: FDA-Public Use
  Company Number: US-ELI_LILLY_AND_COMPANY-US201704003354

PATIENT
  Sex: Male

DRUGS (4)
  1. CIALIS [Suspect]
     Active Substance: TADALAFIL
     Indication: BENIGN PROSTATIC HYPERPLASIA
  2. VIAGRA [Suspect]
     Active Substance: SILDENAFIL CITRATE
     Indication: ERECTILE DYSFUNCTION
     Dosage: UNK, UNKNOWN
     Route: 065
  3. CIALIS [Suspect]
     Active Substance: TADALAFIL
     Indication: ERECTILE DYSFUNCTION
     Dosage: UNK, UNKNOWN
     Route: 065
     Dates: start: 20110804, end: 20120119
  4. VIAGRA [Suspect]
     Active Substance: SILDENAFIL CITRATE
     Indication: BENIGN PROSTATIC HYPERPLASIA

REACTIONS (4)
  - Metastases to central nervous system [Fatal]
  - Malignant melanoma stage II [Fatal]
  - Metastases to liver [Fatal]
  - Colon cancer metastatic [Fatal]

NARRATIVE: CASE EVENT DATE: 20130411
